FAERS Safety Report 16156843 (Version 2)
Quarter: 2019Q2

REPORT INFORMATION
  Report Type: Spontaneous
  Country: FR (occurrence: FR)
  Receive Date: 20190404
  Receipt Date: 20190419
  Transmission Date: 20190711
  Serious: Yes (Hospitalization, Other)
  Sender: FDA-Public Use
  Company Number: FR-BECTON DICKINSON-2019BDN00136

PATIENT
  Age: 49 Year
  Sex: Female
  Weight: 103 kg

DRUGS (1)
  1. CHLORAPREP [Suspect]
     Active Substance: CHLORHEXIDINE GLUCONATE\ISOPROPYL ALCOHOL
     Indication: INFECTION PROPHYLAXIS
     Dosage: 1 DOSAGE UNITS, ONCE
     Route: 003
     Dates: start: 20190116, end: 20190116

REACTIONS (13)
  - Dermo-hypodermitis [Unknown]
  - Application site erosion [Recovering/Resolving]
  - Inflammation [Recovered/Resolved]
  - Abdominal wound dehiscence [Unknown]
  - Escherichia test positive [Unknown]
  - Staphylococcus test positive [Unknown]
  - Enterococcus test positive [Unknown]
  - Pathogen resistance [Unknown]
  - Application site pruritus [Unknown]
  - Application site necrosis [Recovering/Resolving]
  - Application site vesicles [Recovering/Resolving]
  - Erythema [Recovering/Resolving]
  - Application site haemorrhage [Unknown]

NARRATIVE: CASE EVENT DATE: 20190121
